FAERS Safety Report 15547273 (Version 3)
Quarter: 2019Q2

REPORT INFORMATION
  Report Type: Spontaneous
  Country: US (occurrence: US)
  Receive Date: 20181024
  Receipt Date: 20190607
  Transmission Date: 20190711
  Serious: No
  Sender: FDA-Public Use
  Company Number: US-PFIZER INC-2018426418

PATIENT
  Age: 48 Year
  Sex: Female
  Weight: 65.77 kg

DRUGS (2)
  1. IBRANCE [Suspect]
     Active Substance: PALBOCICLIB
     Indication: BREAST CANCER STAGE IV
     Dosage: 125 MG, UNK
     Dates: start: 2015
  2. LETROZOLE. [Concomitant]
     Active Substance: LETROZOLE
     Dosage: 2.5 MG, DAILY

REACTIONS (2)
  - Product dose omission [Not Recovered/Not Resolved]
  - Bone disorder [Unknown]

NARRATIVE: CASE EVENT DATE: 20190426
